FAERS Safety Report 5519216-6 (Version None)
Quarter: 2007Q4

REPORT INFORMATION
  Report Type: 
  Country: None (occurrence: None)
  Receive Date: 20071116
  Receipt Date: 20071105
  Transmission Date: 20080405
  Serious: Yes (Hospitalization)
  Sender: FDA-Public Use
  Company Number: US-AMGEN-QUU249917

PATIENT
  Sex: Female
  Weight: 65.8 kg

DRUGS (8)
  1. ENBREL [Suspect]
     Indication: PSORIATIC ARTHROPATHY
     Route: 058
     Dates: start: 20050701
  2. ENBREL [Suspect]
     Indication: PSORIASIS
  3. MEDROL [Suspect]
     Dates: end: 20060901
  4. FORTEO [Concomitant]
     Dates: start: 20071026
  5. CYMBALTA [Concomitant]
     Dates: start: 20060401
  6. VYTORIN [Concomitant]
     Dates: start: 20050701
  7. SYNTHROID [Concomitant]
  8. XANAX [Concomitant]

REACTIONS (4)
  - CERVICAL VERTEBRAL FRACTURE [None]
  - COMPRESSION FRACTURE [None]
  - FALL [None]
  - INFECTION [None]
